FAERS Safety Report 19038757 (Version 9)
Quarter: 2021Q4

REPORT INFORMATION
  Report Type: Spontaneous
  Country: IN (occurrence: IN)
  Receive Date: 20210322
  Receipt Date: 20211229
  Transmission Date: 20220303
  Serious: Yes (Other)
  Sender: FDA-Public Use
  Company Number: IN-PFIZER INC-2021185781

PATIENT
  Age: 66 Year
  Sex: Female

DRUGS (9)
  1. PALBOCICLIB [Suspect]
     Active Substance: PALBOCICLIB
     Indication: Breast cancer metastatic
     Dosage: 125 MG, 1X/DAY
     Route: 048
     Dates: start: 20210129
  2. PALBOCICLIB [Suspect]
     Active Substance: PALBOCICLIB
     Dosage: 100 MG
     Route: 048
  3. PALBOCICLIB [Suspect]
     Active Substance: PALBOCICLIB
     Dosage: 75 MG, CYCLIC (OD FOR 21 DAYS THEN 7 DAYS OFF )
     Route: 048
  4. LETROZOLE [Concomitant]
     Active Substance: LETROZOLE
     Dosage: 2.5 MG, 1X/DAY
     Dates: start: 202001
  5. ZOLEDRONIC ACID [Concomitant]
     Active Substance: ZOLEDRONIC ACID
     Dosage: MONTHLY 6 TIMES AS PER PROTOCOL
  6. PYRIGESIC [Concomitant]
     Indication: Pain
     Dosage: 1 G UP TO 4 TIMES A DAY
  7. TYDOL [PARACETAMOL] [Concomitant]
     Indication: Pain
     Dosage: 50 MG OD UP TO 4 TIMES PER DAY (IF PAIN NOT REDUCED WITH PARACETAMOL)
  8. DEXORANGE [Concomitant]
     Dosage: 1 DF, DAILY
  9. DUPHALAC [Concomitant]
     Active Substance: LACTULOSE
     Indication: Constipation
     Dosage: 2 TSF FOR CONSTIPATION SOS

REACTIONS (15)
  - Pancytopenia [Unknown]
  - Neutropenia [Unknown]
  - Haemoglobin decreased [Unknown]
  - Platelet count decreased [Unknown]
  - Thrombocytopenia [Unknown]
  - Anaemia [Unknown]
  - White blood cell count decreased [Unknown]
  - Gait disturbance [Unknown]
  - Arthralgia [Unknown]
  - Full blood count abnormal [Unknown]
  - Effusion [Unknown]
  - Heart rate increased [Unknown]
  - Blood pressure systolic increased [Unknown]
  - Pain [Unknown]
  - Creatinine renal clearance decreased [Unknown]

NARRATIVE: CASE EVENT DATE: 20210304
